FAERS Safety Report 20662953 (Version 3)
Quarter: 2022Q2

REPORT INFORMATION
  Report Type: Spontaneous
  Country: US (occurrence: US)
  Receive Date: 20220401
  Receipt Date: 20220629
  Transmission Date: 20220720
  Serious: Yes (Other)
  Sender: FDA-Public Use
  Company Number: US-BRISTOL-MYERS SQUIBB COMPANY-2022-013424

PATIENT
  Age: 74 Year
  Sex: Female

DRUGS (1)
  1. REVLIMID [Suspect]
     Active Substance: LENALIDOMIDE
     Indication: Plasma cell myeloma
     Dosage: TAKE 1 CAPSULE BY MOUTH EVERY 2 DAYS. DO NOT BREAK,CHEW OR OPEN CAPSULE
     Route: 048

REACTIONS (3)
  - Nephrolithiasis [Unknown]
  - Product dose omission issue [Recovered/Resolved]
  - Off label use [Unknown]
